FAERS Safety Report 6768993-5 (Version None)
Quarter: 2010Q2

REPORT INFORMATION
  Report Type: 
  Country: None (occurrence: None)
  Receive Date: 20100615
  Receipt Date: 20100604
  Transmission Date: 20101027
  Serious: No
  Sender: FDA-Public Use
  Company Number: US-BIOGENIDEC-2010BI018979

PATIENT
  Sex: Female

DRUGS (1)
  1. TYSABRI [Suspect]
     Indication: MULTIPLE SCLEROSIS
     Route: 042
     Dates: start: 20100115

REACTIONS (8)
  - FALL [None]
  - GAIT DISTURBANCE [None]
  - HEAD INJURY [None]
  - JOINT LOCK [None]
  - NERVOUS SYSTEM DISORDER [None]
  - SKIN HAEMORRHAGE [None]
  - TEMPERATURE INTOLERANCE [None]
  - VITAMIN D DECREASED [None]
